FAERS Safety Report 9889374 (Version 1)
Quarter: 2014Q1

REPORT INFORMATION
  Report Type: Report from Study
  Country: FR (occurrence: FR)
  Receive Date: 20140211
  Receipt Date: 20140211
  Transmission Date: 20141002
  Serious: Yes (Other)
  Sender: FDA-Public Use
  Company Number: FR-CELGENEUS-056-C4047-14021432

PATIENT
  Age: 73 Year
  Sex: Male

DRUGS (9)
  1. CC-4047 [Suspect]
     Indication: PLASMA CELL MYELOMA
     Dosage: 4 MILLIGRAM
     Route: 048
     Dates: start: 201303, end: 20130710
  2. CC-4047 [Suspect]
     Dosage: 4 MILLIGRAM
     Route: 048
     Dates: start: 20130717, end: 20131106
  3. CC-4047 [Suspect]
     Dosage: 4 MILLIGRAM
     Route: 048
     Dates: start: 20131112
  4. DEXAMETHASONE [Concomitant]
     Indication: PLASMA CELL MYELOMA
     Dosage: 40 MILLIGRAM
     Route: 065
  5. LOVENOX [Concomitant]
     Indication: PROPHYLAXIS
     Route: 065
  6. BACTRIM [Concomitant]
     Indication: PROPHYLAXIS
     Route: 065
  7. LEDERFOLINE [Concomitant]
     Indication: PROPHYLAXIS
     Route: 065
  8. ZELITREX [Concomitant]
     Indication: PROPHYLAXIS
     Route: 065
  9. ORACILLINE [Concomitant]
     Indication: PROPHYLAXIS
     Route: 065

REACTIONS (8)
  - Lymphopenia [Unknown]
  - Pancytopenia [Unknown]
  - Pancytopenia [Unknown]
  - Anaemia [Unknown]
  - Leukopenia [Unknown]
  - Thrombocytopenia [Unknown]
  - Neutropenia [Unknown]
  - Spinal pain [Unknown]
